FAERS Safety Report 23332387 (Version 2)
Quarter: 2024Q1

REPORT INFORMATION
  Report Type: Spontaneous
  Country: US (occurrence: US)
  Receive Date: 20231222
  Receipt Date: 20240116
  Transmission Date: 20240410
  Serious: No
  Sender: FDA-Public Use
  Company Number: US-Merz Pharmaceuticals GmbH-23-03963

PATIENT
  Age: 44 Year
  Sex: Female

DRUGS (2)
  1. XEOMIN [Suspect]
     Active Substance: INCOBOTULINUMTOXINA
     Indication: Skin wrinkling
     Dates: start: 20231110, end: 20231110
  2. XEOMIN [Suspect]
     Active Substance: INCOBOTULINUMTOXINA
     Indication: Skin cosmetic procedure

REACTIONS (4)
  - Drug resistance [Unknown]
  - Drug ineffective [Unknown]
  - Off label use [Unknown]
  - Product preparation issue [Unknown]

NARRATIVE: CASE EVENT DATE: 20230101
